FAERS Safety Report 14818696 (Version 5)
Quarter: 2018Q4

REPORT INFORMATION
  Report Type: Spontaneous
  Country: US (occurrence: US)
  Receive Date: 20180427
  Receipt Date: 20181231
  Transmission Date: 20190204
  Serious: Yes (Other)
  Sender: FDA-Public Use
  Company Number: US-PFIZER INC-2018171614

PATIENT
  Age: 64 Year
  Sex: Female
  Weight: 80 kg

DRUGS (2)
  1. IBRANCE [Suspect]
     Active Substance: PALBOCICLIB
     Indication: BREAST CANCER METASTATIC
     Dosage: 125 MG, CYCLIC (ONE TIME FOR THREE WEEKS AND THEN OFF A WEEK).
     Route: 048
     Dates: start: 2016
  2. HYDROCHLOROTHIAZIDE. [Concomitant]
     Active Substance: HYDROCHLOROTHIAZIDE
     Indication: HYPERTENSION
     Dosage: 20 MG, 1X/DAY
     Route: 048

REACTIONS (6)
  - Pneumonia [Recovering/Resolving]
  - Arthritis [Unknown]
  - Immunosuppression [Unknown]
  - Ear infection [Unknown]
  - Gait disturbance [Unknown]
  - Impaired healing [Unknown]

NARRATIVE: CASE EVENT DATE: 2018
